FAERS Safety Report 13268696 (Version 4)
Quarter: 2017Q4

REPORT INFORMATION
  Report Type: Spontaneous
  Country: IE (occurrence: IE)
  Receive Date: 20170224
  Receipt Date: 20171109
  Transmission Date: 20180320
  Serious: Yes (Hospitalization, Other)
  Sender: FDA-Public Use
  Company Number: IE-TEVA-740875ACC

PATIENT
  Age: 52 Year
  Sex: Male

DRUGS (9)
  1. LIPANTIL SUPRA [Suspect]
     Active Substance: FENOFIBRATE
     Indication: TYPE 2 DIABETES MELLITUS
  2. LIPANTIL SUPRA [Suspect]
     Active Substance: FENOFIBRATE
     Indication: HYPERTENSION
  3. PERINDOPRIL (G) [Suspect]
     Active Substance: PERINDOPRIL
     Indication: HYPERTENSION
     Route: 048
     Dates: start: 201507, end: 20151005
  4. METFORMIN BLUEFISH [Suspect]
     Active Substance: METFORMIN HYDROCHLORIDE
     Indication: TYPE 2 DIABETES MELLITUS
     Route: 048
     Dates: start: 201507, end: 20151005
  5. NU-SEALS 75 MG GASTRO-RESISTANT TABLETS [Concomitant]
     Indication: PROPHYLAXIS
     Dosage: ONGOING TREATMENT
     Route: 048
  6. LIPANTIL SUPRA [Suspect]
     Active Substance: FENOFIBRATE
     Indication: HYPERCHOLESTEROLAEMIA
     Dosage: 145 MILLIGRAM DAILY;
     Route: 048
     Dates: start: 20150829, end: 20151005
  7. ROSUVASTATIN ACTAVIS [Suspect]
     Active Substance: ROSUVASTATIN
     Indication: HYPERCHOLESTEROLAEMIA
     Route: 048
     Dates: start: 201506, end: 20151005
  8. LIPANTIL SUPRA [Suspect]
     Active Substance: FENOFIBRATE
     Indication: BLOOD TRIGLYCERIDES INCREASED
  9. PRIADEL [Concomitant]
     Active Substance: LITHIUM CARBONATE
     Indication: BIPOLAR DISORDER
     Route: 048

REACTIONS (6)
  - Nocturia [Recovering/Resolving]
  - Tubulointerstitial nephritis [Recovering/Resolving]
  - Drug hypersensitivity [Unknown]
  - Chromaturia [Recovering/Resolving]
  - Asthenia [Recovering/Resolving]
  - Fatigue [Recovering/Resolving]

NARRATIVE: CASE EVENT DATE: 201508
